FAERS Safety Report 24636929 (Version 1)
Quarter: 2024Q4

REPORT INFORMATION
  Report Type: Report from Study
  Country: GB (occurrence: GB)
  Receive Date: 20241119
  Receipt Date: 20241119
  Transmission Date: 20250115
  Serious: Yes (Congenital Anomaly, Other)
  Sender: GILEAD
  Company Number: GB-GILEAD-2024-0693684

PATIENT
  Sex: Female

DRUGS (9)
  1. EMTRICITABINE\TENOFOVIR DISOPROXIL FUMARATE [Suspect]
     Active Substance: EMTRICITABINE\TENOFOVIR DISOPROXIL FUMARATE
     Indication: HIV infection
     Dosage: UNK
     Route: 064
     Dates: start: 20070605, end: 20081023
  2. APTIVUS [Suspect]
     Active Substance: TIPRANAVIR
     Indication: Product used for unknown indication
     Dosage: 1000 MG, QD
     Route: 064
     Dates: start: 20060905, end: 20081023
  3. DARUNAVIR [Suspect]
     Active Substance: DARUNAVIR
     Indication: Product used for unknown indication
     Dosage: 1200 MG, QD
     Route: 064
     Dates: start: 20081023
  4. ISENTRESS [Suspect]
     Active Substance: RALTEGRAVIR POTASSIUM
     Indication: Product used for unknown indication
     Dosage: 800 MG, QD
     Route: 064
     Dates: start: 20081023, end: 20090221
  5. INTELENCE [Suspect]
     Active Substance: ETRAVIRINE
     Indication: Product used for unknown indication
     Dosage: 1000 MG, QD
     Route: 064
     Dates: end: 20081023
  6. INTELENCE [Suspect]
     Active Substance: ETRAVIRINE
     Dosage: 4000 MG, QD
     Route: 064
     Dates: start: 20081023
  7. NORVIR [Suspect]
     Active Substance: RITONAVIR
     Indication: Product used for unknown indication
     Dosage: 200 MG, QD
     Route: 064
     Dates: start: 20060905, end: 20081023
  8. NORVIR [Suspect]
     Active Substance: RITONAVIR
     Dosage: 200 MG, QD
     Route: 064
     Dates: start: 20081023
  9. ZIDOVUDINE [Suspect]
     Active Substance: ZIDOVUDINE
     Indication: Product used for unknown indication
     Dosage: UNK
     Route: 064

REACTIONS (15)
  - Congenital genital malformation [Unknown]
  - Genitalia external ambiguous [Unknown]
  - Bladder agenesis [Unknown]
  - Cloacal exstrophy [Unknown]
  - Meningomyelocele [Unknown]
  - Caudal regression syndrome [Unknown]
  - Congenital musculoskeletal disorder of spine [Unknown]
  - Tethered cord syndrome [Unknown]
  - Gastrointestinal malformation [Unknown]
  - Anal atresia [Unknown]
  - Lipodystrophy acquired [Unknown]
  - Exomphalos [Unknown]
  - Umbilical cord abnormality [Unknown]
  - Premature baby [Recovered/Resolved]
  - Foetal exposure during pregnancy [Recovered/Resolved]
